FAERS Safety Report 10442238 (Version 1)
Quarter: 2014Q2

REPORT INFORMATION
  Report Type: Spontaneous
  Country: US (occurrence: None)
  Receive Date: 20140616
  Receipt Date: 20140616
  Transmission Date: 20141212
  Serious: Yes (Hospitalization, Other)
  Sender: FDA-Public Use
  Company Number: 2013-000225

PATIENT
  Age: 78 Year
  Sex: Female

DRUGS (11)
  1. ACTONEL (RISEDRONATE SODIUM) TABLET, 35MG [Suspect]
     Indication: OSTEOPOROSIS
     Route: 048
     Dates: start: 2006
  2. ACTONEL (RISEDRONATE SODIUM) TABLET, 35MG [Suspect]
     Indication: OSTEOPENIA
     Route: 048
     Dates: start: 2006
  3. ACTONEL (RISEDRONATE SODIUM) TABLET, 35MG [Suspect]
     Indication: OSTEOPOROSIS PROPHYLAXIS
     Route: 048
     Dates: start: 2006
  4. FOSAMAX (ALENDRONATE SODIUM) [Suspect]
     Indication: OSTEOPOROSIS
     Route: 048
     Dates: start: 200601, end: 201207
  5. FOSAMAX (ALENDRONATE SODIUM) [Suspect]
     Indication: OSTEOPENIA
     Route: 048
     Dates: start: 200601, end: 201207
  6. FOSAMAX (ALENDRONATE SODIUM) [Suspect]
     Indication: OSTEOPOROSIS PROPHYLAXIS
     Route: 048
     Dates: start: 200601, end: 201207
  7. BONIVA (IBANDRONATE SODIUM) [Suspect]
     Indication: OSTEOPOROSIS
     Dates: start: 200507, end: 200601
  8. BONIVA (IBANDRONATE SODIUM) [Suspect]
     Indication: OSTEOPENIA
     Dates: start: 200507, end: 200601
  9. BONIVA (IBANDRONATE SODIUM) [Suspect]
     Indication: OSTEOPOROSIS PROPHYLAXIS
     Dates: start: 200507, end: 200601
  10. SYNTHROID (LEVOTHYROXINE SODIUM) [Concomitant]
  11. LISINOPRIL  (LISINOPRIL) [Concomitant]

REACTIONS (8)
  - Periprosthetic fracture [None]
  - Femur fracture [None]
  - Fracture displacement [None]
  - Fall [None]
  - Pathological fracture [None]
  - Stress fracture [None]
  - Bone disorder [None]
  - Low turnover osteopathy [None]
